FAERS Safety Report 9157261 (Version 2)
Quarter: 2013Q2

REPORT INFORMATION
  Report Type: Report from Study
  Country: US (occurrence: US)
  Receive Date: 20130312
  Receipt Date: 20130422
  Transmission Date: 20140414
  Serious: Yes (Hospitalization)
  Sender: FDA-Public Use
  Company Number: US-BRISTOL-MYERS SQUIBB COMPANY-17438458

PATIENT
  Age: 38 Year
  Sex: Male
  Weight: 96.3 kg

DRUGS (1)
  1. IPILIMUMAB [Suspect]
     Indication: MALIGNANT MELANOMA
     Dosage: TOTAL DOSE: 289 MG?LAST DOSE: 14/FEB/2013
     Route: 042
     Dates: start: 20130103

REACTIONS (1)
  - Cellulitis [Recovering/Resolving]
